FAERS Safety Report 15532864 (Version 1)
Quarter: 2018Q4

REPORT INFORMATION
  Report Type: Spontaneous
  Country: US (occurrence: US)
  Receive Date: 20181019
  Receipt Date: 20181019
  Transmission Date: 20190205
  Serious: No
  Sender: FDA-Public Use
  Company Number: US-TEVA-2018-US-963058

PATIENT
  Sex: Female

DRUGS (1)
  1. ZOLPIDEM [Suspect]
     Active Substance: ZOLPIDEM\ZOLPIDEM TARTRATE
     Route: 065

REACTIONS (5)
  - Gastrointestinal disorder [Unknown]
  - Gastric dilatation [Unknown]
  - Intestinal villi atrophy [Unknown]
  - Sleep disorder [Unknown]
  - Dark circles under eyes [Unknown]
